FAERS Safety Report 19119351 (Version 2)
Quarter: 2021Q2

REPORT INFORMATION
  Report Type: Spontaneous
  Country: JP (occurrence: JP)
  Receive Date: 20210411
  Receipt Date: 20210413
  Transmission Date: 20210717
  Serious: No
  Sender: FDA-Public Use
  Company Number: JP-ORGANON-O2104JPN000705

PATIENT
  Sex: Male

DRUGS (1)
  1. MOMETASONE FUROATE. [Suspect]
     Active Substance: MOMETASONE FUROATE
     Indication: SEASONAL ALLERGY
     Dosage: 4 SPRAYS
     Route: 045
     Dates: start: 20210222

REACTIONS (1)
  - Sneezing [Unknown]

NARRATIVE: CASE EVENT DATE: 2021
